FAERS Safety Report 20144841 (Version 1)
Quarter: 2021Q4

REPORT INFORMATION
  Report Type: Spontaneous
  Country: US (occurrence: None)
  Receive Date: 20211129
  Receipt Date: 20211129
  Transmission Date: 20220303
  Serious: No
  Sender: FDA-Public Use
  Company Number: None

PATIENT

DRUGS (1)
  1. SODIUM CHLORIDE [Suspect]
     Active Substance: SODIUM CHLORIDE
     Indication: Nasal dryness
     Route: 055
     Dates: start: 20211122, end: 20211122

REACTIONS (6)
  - Nasal discomfort [None]
  - Product odour abnormal [None]
  - Rhinalgia [None]
  - Sinusitis [None]
  - Fungal infection [None]
  - Product complaint [None]

NARRATIVE: CASE EVENT DATE: 20211122
